FAERS Safety Report 8920064 (Version 1)
Quarter: 2012Q4

REPORT INFORMATION
  Report Type: 
  Country: US (occurrence: US)
  Receive Date: 20121121
  Receipt Date: 20121121
  Transmission Date: 20130627
  Serious: No
  Sender: FDA-Public Use
  Company Number: US-BRISTOL-MYERS SQUIBB COMPANY-16982050

PATIENT
  Age: 89 Year
  Sex: Female
  Weight: 58.96 kg

DRUGS (1)
  1. AVALIDE TABS 150MG/12.5MG [Suspect]
     Indication: HYPERTENSION
     Dosage: 1DF: 150/12.5 mg

REACTIONS (2)
  - Tooth fracture [Not Recovered/Not Resolved]
  - Tablet physical issue [Not Recovered/Not Resolved]
